FAERS Safety Report 11475174 (Version 1)
Quarter: 2015Q3

REPORT INFORMATION
  Report Type: Spontaneous
  Country: US (occurrence: None)
  Receive Date: 20150908
  Receipt Date: 20150908
  Transmission Date: 20151125
  Serious: No
  Sender: FDA-Public Use
  Company Number: None

PATIENT
  Age: 75 Year
  Sex: Male
  Weight: 97.52 kg

DRUGS (8)
  1. NIASPAN [Concomitant]
     Active Substance: NIACIN
  2. BILBERRY [Concomitant]
     Active Substance: BILBERRY
  3. CENTRUM [Concomitant]
     Active Substance: VITAMINS
  4. MONOPROLO [Concomitant]
  5. TRAZODONE [Concomitant]
     Active Substance: TRAZODONE HYDROCHLORIDE
  6. FOSINOPRIL [Concomitant]
     Active Substance: FOSINOPRIL
  7. ZETIA [Concomitant]
     Active Substance: EZETIMIBE
  8. TRAZODONE 150 MG TEVA PHARM [Suspect]
     Active Substance: TRAZODONE HYDROCHLORIDE
     Indication: ANXIETY
     Dosage: AT BEDTIME, TAKEN BY MOUTH
     Dates: start: 20150816

REACTIONS (3)
  - Foreign body [None]
  - Oropharyngeal pain [None]
  - Wheezing [None]

NARRATIVE: CASE EVENT DATE: 20150817
